FAERS Safety Report 17455727 (Version 1)
Quarter: 2020Q1

REPORT INFORMATION
  Report Type: Spontaneous
  Country: BR (occurrence: BR)
  Receive Date: 20200225
  Receipt Date: 20200225
  Transmission Date: 20200409
  Serious: Yes (Other)
  Sender: FDA-Public Use
  Company Number: NVSC2020BR050356

PATIENT
  Sex: Female
  Weight: 58 kg

DRUGS (6)
  1. DULOXETINE. [Suspect]
     Active Substance: DULOXETINE
     Indication: DEPRESSION
     Dosage: 1 DF, QD (START DATE: 3 MONTH AGO AND STOP DATE 1 MONTH AGO)
     Route: 048
  2. COSENTYX [Concomitant]
     Active Substance: SECUKINUMAB
     Indication: ANKYLOSING SPONDYLITIS
     Dosage: 150 MG, QMO
     Route: 065
     Dates: start: 20190506
  3. FLUOXETINE [Concomitant]
     Active Substance: FLUOXETINE HYDROCHLORIDE
     Indication: DEPRESSION
     Dosage: 3 DF, QD (START DATE: 1 MONTH AGO)
     Route: 048
  4. NATIFA PRO [Concomitant]
     Indication: MENOPAUSE
     Dosage: UNK (START DATE: 5 YEARS AGO)
     Route: 048
  5. GABAPENTIN. [Suspect]
     Active Substance: GABAPENTIN
     Indication: PRODUCT USED FOR UNKNOWN INDICATION
     Dosage: 1 DF, QD (START DATE: 3 MONTH AGO)
     Route: 048
  6. PARKIDOPA [Concomitant]
     Indication: PARALYSIS
     Dosage: UNK, Q4H (1 UNIT SPLIT IN 4 PARTS AND START DATE: 2 MONTHS AGO)
     Route: 048

REACTIONS (3)
  - Pyrexia [Unknown]
  - Parkinson^s disease [Recovering/Resolving]
  - Pain [Unknown]
